FAERS Safety Report 25892686 (Version 2)
Quarter: 2025Q4

REPORT INFORMATION
  Report Type: Spontaneous
  Country: EU (occurrence: EU)
  Receive Date: 20251007
  Receipt Date: 20251129
  Transmission Date: 20260117
  Serious: No
  Sender: NOVARTIS
  Company Number: EU-002147023-NVSC2025FR152292

PATIENT
  Sex: Male

DRUGS (1)
  1. ZOLGENSMA [Suspect]
     Active Substance: ONASEMNOGENE ABEPARVOVEC-XIOI
     Indication: Product used for unknown indication
     Dosage: UNK, ONCE/SINGLE
     Route: 042

REACTIONS (1)
  - Accidental exposure to product [Unknown]
